FAERS Safety Report 19933970 (Version 2)
Quarter: 2021Q4

REPORT INFORMATION
  Report Type: Report from Study
  Country: US (occurrence: US)
  Receive Date: 20211008
  Receipt Date: 20211021
  Transmission Date: 20220303
  Serious: Yes (Death, Hospitalization, Other)
  Sender: FDA-Public Use
  Company Number: US-BRISTOL-MYERS SQUIBB COMPANY-BMS-2021-095256

PATIENT
  Age: 67 Year
  Sex: Female
  Weight: 148 kg

DRUGS (1)
  1. APIXABAN [Suspect]
     Active Substance: APIXABAN
     Indication: Pulmonary embolism
     Dosage: 5 MILLIGRAM, BID
     Route: 048
     Dates: start: 20210221, end: 20210808

REACTIONS (4)
  - Neoplasm progression [Fatal]
  - Sepsis [Unknown]
  - Hepatic enzyme increased [Unknown]
  - Pulmonary embolism [Unknown]

NARRATIVE: CASE EVENT DATE: 20210808
